FAERS Safety Report 25413566 (Version 1)
Quarter: 2025Q2

REPORT INFORMATION
  Report Type: Spontaneous
  Country: US (occurrence: None)
  Receive Date: 20250607
  Receipt Date: 20250607
  Transmission Date: 20250717
  Serious: Yes (Other)
  Sender: FDA-CTU
  Company Number: None

PATIENT
  Age: 38 Year
  Sex: Female

DRUGS (1)
  1. WEGOVY [Suspect]
     Active Substance: SEMAGLUTIDE

REACTIONS (6)
  - Anxiety [None]
  - Depression [None]
  - Mania [None]
  - Insomnia [None]
  - Impaired work ability [None]
  - Tachyphrenia [None]

NARRATIVE: CASE EVENT DATE: 20250509
